FAERS Safety Report 22940382 (Version 3)
Quarter: 2023Q4

REPORT INFORMATION
  Report Type: Spontaneous
  Country: CN (occurrence: CN)
  Receive Date: 20230913
  Receipt Date: 20231005
  Transmission Date: 20240110
  Serious: Yes (Death)
  Sender: FDA-Public Use
  Company Number: CN-JNJFOC-20230912953

PATIENT
  Age: 73 Year
  Sex: Male

DRUGS (7)
  1. ACETAMINOPHEN [Suspect]
     Active Substance: ACETAMINOPHEN
     Indication: Pain
     Dosage: 4 G/DAY AND TOTAL CUMULATIVE DOSE OF 160 G
     Route: 048
  2. VORICONAZOLE [Concomitant]
     Active Substance: VORICONAZOLE
     Indication: Bronchopulmonary aspergillosis
     Dosage: 6-WEEK COURSE OF VORICONAZOLE 400 MG/DAY
     Route: 065
  3. CEFOPERAZONE\SULBACTAM [Concomitant]
     Active Substance: CEFOPERAZONE\SULBACTAM
     Indication: Bronchopulmonary aspergillosis
     Route: 042
  4. METRONIDAZOLE [Concomitant]
     Active Substance: METRONIDAZOLE
     Indication: Bronchopulmonary aspergillosis
     Route: 042
  5. VANCOMYCIN [Concomitant]
     Active Substance: VANCOMYCIN
     Indication: Bronchopulmonary aspergillosis
     Route: 042
  6. PIPERACILLIN AND TAZOBACTAM [Concomitant]
     Active Substance: PIPERACILLIN SODIUM\TAZOBACTAM SODIUM
     Indication: Bronchopulmonary aspergillosis
     Route: 042
  7. MEROPENEM [Concomitant]
     Active Substance: MEROPENEM
     Indication: Bronchopulmonary aspergillosis
     Route: 042

REACTIONS (6)
  - Metabolic acidosis [Fatal]
  - Respiratory acidosis [Fatal]
  - Electrolyte imbalance [Fatal]
  - Off label use [Fatal]
  - Haemoptysis [Fatal]
  - Bronchopulmonary aspergillosis [Fatal]
